FAERS Safety Report 12104641 (Version 2)
Quarter: 2016Q1

REPORT INFORMATION
  Report Type: Report from Study
  Country: US (occurrence: US)
  Receive Date: 20160223
  Receipt Date: 20160302
  Transmission Date: 20160526
  Serious: No
  Sender: FDA-Public Use
  Company Number: US-AMGEN-USASL2016017482

PATIENT
  Age: 65 Year
  Sex: Female

DRUGS (1)
  1. ENBREL [Suspect]
     Active Substance: ETANERCEPT
     Indication: RHEUMATOID ARTHRITIS
     Dosage: 50 MG, QWK
     Route: 065
     Dates: start: 20151230

REACTIONS (8)
  - Parosmia [Not Recovered/Not Resolved]
  - Decreased appetite [Not Recovered/Not Resolved]
  - Weight bearing difficulty [Unknown]
  - Pain [Unknown]
  - Pain in extremity [Unknown]
  - Dysgeusia [Not Recovered/Not Resolved]
  - Tremor [Unknown]
  - Arthralgia [Unknown]

NARRATIVE: CASE EVENT DATE: 20160224
